FAERS Safety Report 11131601 (Version 2)
Quarter: 2015Q4

REPORT INFORMATION
  Report Type: Spontaneous
  Country: US (occurrence: US)
  Receive Date: 20150522
  Receipt Date: 20151229
  Transmission Date: 20160304
  Serious: Yes (Other)
  Sender: FDA-Public Use
  Company Number: US-ASTRAZENECA-2015SE46151

PATIENT
  Sex: Female
  Weight: 70.3 kg

DRUGS (23)
  1. BYETTA [Suspect]
     Active Substance: EXENATIDE
     Indication: TYPE 2 DIABETES MELLITUS
     Route: 065
     Dates: start: 20051013
  2. CEPHALEXIN. [Concomitant]
     Active Substance: CEPHALEXIN
     Dates: start: 20091009
  3. ONDANSETRON [Concomitant]
     Active Substance: ONDANSETRON
     Dates: start: 20150126
  4. BYETTA [Suspect]
     Active Substance: EXENATIDE
     Indication: TYPE 2 DIABETES MELLITUS
     Route: 065
     Dates: start: 20051013, end: 20080913
  5. VICTOZA [Suspect]
     Active Substance: LIRAGLUTIDE
     Route: 065
  6. VITAMIN D [Concomitant]
     Active Substance: CHOLECALCIFEROL
     Route: 048
     Dates: start: 20091013
  7. VICTOZA [Suspect]
     Active Substance: LIRAGLUTIDE
     Dosage: 18MG/3ML
     Route: 065
     Dates: start: 20110613
  8. ALTACE [Concomitant]
     Active Substance: RAMIPRIL
     Dates: start: 20090707
  9. ZETIA [Concomitant]
     Active Substance: EZETIMIBE
     Dates: start: 20090707
  10. DOXYCYCLINE. [Concomitant]
     Active Substance: DOXYCYCLINE
     Dates: start: 19550614
  11. BYETTA [Suspect]
     Active Substance: EXENATIDE
     Indication: TYPE 2 DIABETES MELLITUS
     Route: 058
     Dates: start: 20080911
  12. NORCO/ANEXCIA [Concomitant]
  13. AVANDIA [Concomitant]
     Active Substance: ROSIGLITAZONE MALEATE
     Dates: start: 20051013
  14. PROMETHAZINE [Concomitant]
     Active Substance: PROMETHAZINE\PROMETHAZINE HYDROCHLORIDE
     Dates: start: 20090930
  15. PRAVACHOL [Concomitant]
     Active Substance: PRAVASTATIN SODIUM
     Dates: start: 20090720
  16. LANTUS [Concomitant]
     Active Substance: INSULIN GLARGINE
     Dates: start: 20091012
  17. METFORMIN HYDROCHLORIDE. [Concomitant]
     Active Substance: METFORMIN HYDROCHLORIDE
     Dates: start: 20090720
  18. SYMLIN [Concomitant]
     Active Substance: PRAMLINTIDE ACETATE
     Dosage: 1000 MCG/ML, THREE TIMES A DAY
     Dates: start: 20090518
  19. SYNTHROID/LEVOTHROID [Concomitant]
     Dates: start: 20090707
  20. TRICOR [Concomitant]
     Active Substance: FENOFIBRATE
     Dates: start: 20101124
  21. NAPROXEN. [Concomitant]
     Active Substance: NAPROXEN
     Dates: start: 20150126
  22. AMOXIL [Concomitant]
     Active Substance: AMOXICILLIN
     Dates: start: 19990830
  23. PROMENSIL [Concomitant]
     Dates: start: 20090720

REACTIONS (5)
  - Goitre [Unknown]
  - Metastases to lymph nodes [Unknown]
  - Papillary thyroid cancer [Unknown]
  - Huerthle cell carcinoma [Unknown]
  - Metastases to neck [Unknown]
